FAERS Safety Report 17951574 (Version 1)
Quarter: 2020Q2

REPORT INFORMATION
  Report Type: Report from Study
  Country: NL (occurrence: NL)
  Receive Date: 20200626
  Receipt Date: 20200626
  Transmission Date: 20200714
  Serious: Yes (Other)
  Sender: FDA-Public Use
  Company Number: NL-MYLANLABS-2020M1059089

PATIENT
  Age: 5 Year
  Sex: Female

DRUGS (3)
  1. INDOMETHACIN                       /00003801/ [Suspect]
     Active Substance: INDOMETHACIN
     Indication: NEPHRECTOMY
     Dosage: THERAPY ADMINISTERED FOR TOTAL 6 MONTHS
     Route: 065
  2. ENALAPRIL [Suspect]
     Active Substance: ENALAPRIL
     Indication: NEPHRECTOMY
     Dosage: 0.08 MILLIGRAM/KILOGRAM, QD
     Route: 065
  3. INDOMETHACIN                       /00003801/ [Suspect]
     Active Substance: INDOMETHACIN
     Dosage: THERAPY ADMINISTERED FOR TOTAL 6 MONTHS
     Route: 065

REACTIONS (2)
  - Drug ineffective [Unknown]
  - Hypotension [Unknown]
